FAERS Safety Report 5110553-6 (Version None)
Quarter: 2006Q3

REPORT INFORMATION
  Report Type: 
  Country: None (occurrence: None)
  Receive Date: 20060915
  Receipt Date: 20060912
  Transmission Date: 20061208
  Serious: Yes (Hospitalization)
  Sender: FDA-Public Use
  Company Number: HQWYE616213SEP06

PATIENT
  Age: 46 Year
  Sex: Female
  Weight: 68.1 kg

DRUGS (2)
  1. PREMPRO [Suspect]
     Indication: HORMONE REPLACEMENT THERAPY
     Dosage: 0.45/1.5 DAILY, ORAL
     Route: 048
     Dates: start: 20060501, end: 20060701
  2. NEXIUM [Concomitant]

REACTIONS (1)
  - ATRIAL FIBRILLATION [None]
